FAERS Safety Report 8612151-6 (Version None)
Quarter: 2012Q3

REPORT INFORMATION
  Report Type: 
  Country: None (occurrence: None)
  Receive Date: 20120822
  Receipt Date: 20120814
  Transmission Date: 20120928
  Serious: Yes (Other)
  Sender: FDA-Public Use
  Company Number: US-BAYER-2012-084909

PATIENT
  Age: 26 Year
  Sex: Female
  Weight: 134.24 kg

DRUGS (21)
  1. FEXOFENADINE [Concomitant]
     Indication: HYPERSENSITIVITY
     Dosage: 180 MG, QD
     Route: 048
     Dates: start: 20090108
  2. BACTRIM DS [Concomitant]
  3. ASPIRIN [Concomitant]
     Indication: THROMBOPHLEBITIS SUPERFICIAL
     Dosage: TAKE 2 TABLETS EVERY 4 TO 6 HOURS AS NEEDED
     Dates: start: 20090217
  4. LACTOBACILLUS ACIDOPHILUS [Concomitant]
     Dosage: TAKE 2 FOUR TIMES A DAY
     Route: 048
     Dates: start: 20081105
  5. IBUPROFEN [Concomitant]
     Indication: INFLAMMATORY PAIN
  6. CITRACAL [Concomitant]
     Dosage: UNK
     Dates: start: 20081117
  7. AMOXICILLIN [Concomitant]
     Indication: INFECTION
     Dosage: 500 MG, 1 TABLET, TID
     Route: 048
     Dates: start: 20090128
  8. VICODIN [Concomitant]
  9. OLOPATADINE [Concomitant]
     Indication: HYPERSENSITIVITY
     Dosage: 0.1 %, BID
     Route: 047
     Dates: start: 20081211
  10. AMOXICILLIN AND CLAVULANATE POTASSIUM [Concomitant]
     Indication: INFECTION
     Dosage: 875MG/125MG, 1 TABLET EVERY 12 HOURS
     Route: 048
     Dates: start: 20081107
  11. GALENIC /TRIPROLIDINE/PSEUDOEPHEDRINE/ [Concomitant]
     Indication: HYPERSENSITIVITY
  12. ASPIRIN [Concomitant]
     Indication: PAIN
     Dosage: 325 MG, 2 TABLETS
     Route: 048
     Dates: start: 20090217
  13. CEFUROXIME [Concomitant]
     Indication: INFECTION
     Dosage: 250 MG,1 TABLET, BID
     Route: 048
     Dates: start: 20081229
  14. GALENIC /TRIPROLIDINE/PSEUDOEPHEDRINE/ [Concomitant]
     Indication: NASOPHARYNGITIS
     Dosage: 2.5/60MG, TAKE 1 TABLET EVERY 4 HOURS IF NEEDED
     Route: 048
     Dates: start: 20081211
  15. GUAIFENESIN W/DEXTROMETHORPHAN [Concomitant]
     Indication: COUGH
     Dosage: 100MG/10MG, 1 TO 2 TEASPOONFULS EVERY 4 TO 6 HOURS
     Route: 048
     Dates: start: 20081229
  16. PROMETHAZINE W/ CODEINE [Concomitant]
     Indication: COUGH
     Dosage: 6.25/10MG/ML, TAKE 1-2 TEASPOONFULS EVERY 6 HOURS AND AT BEDTIME
     Route: 048
     Dates: start: 20081229
  17. VITAMIN B-12 [Concomitant]
     Dosage: EVERYDAY
     Route: 060
     Dates: start: 20090108
  18. BECLOMETHASONE AQUEOUS [Concomitant]
     Indication: RHINITIS ALLERGIC
     Dosage: 2 SPRAYS, BID
     Route: 045
     Dates: start: 20090128
  19. YAZ [Suspect]
  20. CLINDAMYCIN [Concomitant]
     Indication: INFECTION
     Dosage: 150 MG, TAKE 2 QID
     Route: 048
     Dates: start: 20081105
  21. IBUPROFEN [Concomitant]
     Indication: INFLAMMATION
     Dosage: 400 MG, 2 TABLETS,TID
     Route: 048
     Dates: start: 20090123

REACTIONS (1)
  - THROMBOPHLEBITIS SUPERFICIAL [None]
